FAERS Safety Report 6445650-6 (Version None)
Quarter: 2009Q4

REPORT INFORMATION
  Report Type: 
  Country: None (occurrence: None)
  Receive Date: 20091118
  Receipt Date: 20091118
  Transmission Date: 20100525
  Serious: Yes (Death)
  Sender: FDA-Public Use
  Company Number: None

PATIENT
  Sex: Male
  Weight: 136.4 kg

DRUGS (5)
  1. EFFEXOR XR [Suspect]
     Indication: DEPRESSION
     Dosage: 150 MG 1 TIME DAILY BY MOUTH
  2. EFFEXOR XR [Suspect]
     Indication: INSOMNIA
     Dosage: 150 MG 1 TIME DAILY BY MOUTH
  3. REMERON [Suspect]
     Indication: DEPRESSION
     Dosage: 45 MG AT BEDTIME BY MOUTH
     Dates: start: 20080501
  4. REMERON [Suspect]
     Indication: INSOMNIA
     Dosage: 45 MG AT BEDTIME BY MOUTH
     Dates: start: 20080501
  5. IVC BENOTECH FILTER [Concomitant]

REACTIONS (10)
  - ABDOMINAL PAIN UPPER [None]
  - EYE PAIN [None]
  - HEPATIC STEATOSIS [None]
  - LOSS OF CONSCIOUSNESS [None]
  - NAUSEA [None]
  - PULMONARY CONGESTION [None]
  - SEROTONIN SYNDROME [None]
  - SOMNOLENCE [None]
  - SUDDEN DEATH [None]
  - VOMITING [None]
